FAERS Safety Report 9889711 (Version 3)
Quarter: 2014Q2

REPORT INFORMATION
  Report Type: Spontaneous
  Country: US (occurrence: US)
  Receive Date: 20140211
  Receipt Date: 20140410
  Transmission Date: 20141212
  Serious: No
  Sender: FDA-Public Use
  Company Number: US-PFIZER INC-2014038650

PATIENT
  Age: 54 Year
  Sex: Female

DRUGS (4)
  1. IBUPROFEN [Suspect]
     Dosage: UNK
  2. ADVIL [Suspect]
     Dosage: UNK
     Route: 048
  3. ASA [Suspect]
     Dosage: UNK
     Route: 048
  4. PROTONIX [Concomitant]
     Indication: GASTROOESOPHAGEAL REFLUX DISEASE
     Dosage: 40 MG, DAILY
     Route: 048
     Dates: start: 20140115

REACTIONS (4)
  - Drug hypersensitivity [Unknown]
  - Tremor [Unknown]
  - Nausea [Unknown]
  - Blood cholesterol increased [Unknown]
